FAERS Safety Report 7725811-6 (Version None)
Quarter: 2011Q3

REPORT INFORMATION
  Report Type: 
  Country: None (occurrence: None)
  Receive Date: 20110902
  Receipt Date: 20110830
  Transmission Date: 20111222
  Serious: Yes (Death)
  Sender: FDA-Public Use
  Company Number: DE-SANOFI-AVENTIS-2011SA055874

PATIENT
  Age: 51 Year
  Sex: Female

DRUGS (2)
  1. BISOPROLOL FUMARATE [Concomitant]
     Route: 048
     Dates: end: 20110101
  2. MULTAQ [Suspect]
     Route: 048
     Dates: start: 20110301, end: 20110801

REACTIONS (1)
  - SUDDEN CARDIAC DEATH [None]
